FAERS Safety Report 10650310 (Version 1)
Quarter: 2014Q4

REPORT INFORMATION
  Report Type: Report from Study
  Country: BR (occurrence: BR)
  Receive Date: 20141213
  Receipt Date: 20141213
  Transmission Date: 20150529
  Serious: Yes (Other)
  Sender: FDA-Public Use
  Company Number: ALCN2014BR006849

PATIENT
  Sex: Male

DRUGS (1)
  1. TRAVATAN [Suspect]
     Active Substance: TRAVOPROST
     Dosage: 1 UNK, UNK
     Route: 047

REACTIONS (3)
  - Chromatopsia [Unknown]
  - Retinal artery occlusion [Unknown]
  - Abnormal sensation in eye [Unknown]
